FAERS Safety Report 8572017-7 (Version None)
Quarter: 2012Q3

REPORT INFORMATION
  Report Type: 
  Country: None (occurrence: None)
  Receive Date: 20120806
  Receipt Date: 20120726
  Transmission Date: 20120928
  Serious: Yes (Hospitalization)
  Sender: FDA-Public Use
  Company Number: CA-BRISTOL-MYERS SQUIBB COMPANY-16813388

PATIENT
  Age: 64 Year
  Sex: Female

DRUGS (10)
  1. DIGOXIN [Concomitant]
  2. ORENCIA [Suspect]
     Indication: RHEUMATOID ARTHRITIS
     Dosage: LAST DOSE:19JUN2012,3 INFUSIONS
     Route: 042
     Dates: start: 20120516
  3. GLUCOSE POLYMERS [Concomitant]
  4. FUROSEMIDE [Concomitant]
  5. COUMADIN [Concomitant]
  6. PREDNISONE [Concomitant]
  7. PANTOPRAZOLE SODIUM [Concomitant]
  8. IRON [Concomitant]
     Dosage: IRON INFUSIONS
  9. VITAMIN D [Concomitant]
     Dosage: TABS
  10. FOLIC ACID [Concomitant]
     Dosage: EURO FOLIC

REACTIONS (1)
  - ARRHYTHMIA [None]
